FAERS Safety Report 12355683 (Version 2)
Quarter: 2016Q2

REPORT INFORMATION
  Report Type: Spontaneous
  Country: LT (occurrence: LT)
  Receive Date: 20160511
  Receipt Date: 20160608
  Transmission Date: 20160815
  Serious: Yes (Hospitalization)
  Sender: FDA-Public Use
  Company Number: LT-ABBVIE-16P-234-1623822-00

PATIENT
  Sex: Male

DRUGS (1)
  1. KALETRA [Suspect]
     Active Substance: LOPINAVIR\RITONAVIR
     Indication: MATERNAL EXPOSURE TIMING UNSPECIFIED
     Route: 064

REACTIONS (4)
  - Respiratory disorder [Recovered/Resolved]
  - Foetal exposure during pregnancy [Unknown]
  - Normal newborn [Unknown]
  - Premature baby [Unknown]

NARRATIVE: CASE EVENT DATE: 20160314
